FAERS Safety Report 14675779 (Version 2)
Quarter: 2018Q1

REPORT INFORMATION
  Report Type: Spontaneous
  Country: US (occurrence: US)
  Receive Date: 20180323
  Receipt Date: 20180327
  Transmission Date: 20180509
  Serious: Yes (Other)
  Sender: FDA-Public Use
  Company Number: US-TEVA-2018-US-872321

PATIENT
  Sex: Male

DRUGS (2)
  1. CLONAZTAB [Suspect]
     Active Substance: CLONAZEPAM
     Indication: MUSCLE SPASMS
     Dates: start: 1990
  2. CLONAZTAB [Suspect]
     Active Substance: CLONAZEPAM
     Indication: NEURALGIA
     Route: 065

REACTIONS (2)
  - Rash erythematous [Recovering/Resolving]
  - Food allergy [Unknown]

NARRATIVE: CASE EVENT DATE: 201709
